FAERS Safety Report 6609326-4 (Version None)
Quarter: 2010Q2

REPORT INFORMATION
  Report Type: 
  Country: None (occurrence: None)
  Receive Date: 20100302
  Receipt Date: 20100128
  Transmission Date: 20101027
  Serious: Yes (Other)
  Sender: FDA-Public Use
  Company Number: US-RB-001949-10

PATIENT
  Age: 5 Year
  Sex: Female

DRUGS (1)
  1. DELSYM [Suspect]
     Dosage: I TOOK HALF A TEASPOON
     Route: 048
     Dates: start: 20091001

REACTIONS (3)
  - PHARYNGEAL OEDEMA [None]
  - SWOLLEN TONGUE [None]
  - URTICARIA [None]
